FAERS Safety Report 5495995-1 (Version None)
Quarter: 2007Q4

REPORT INFORMATION
  Report Type: 
  Country: None (occurrence: None)
  Receive Date: 20071025
  Receipt Date: 20070108
  Transmission Date: 20080405
  Serious: No
  Sender: FDA-Public Use
  Company Number: A0634735A

PATIENT
  Age: 52 Year
  Sex: Female

DRUGS (9)
  1. ADVAIR DISKUS 100/50 [Suspect]
     Indication: ASTHMA
     Dosage: 1PUFF TWICE PER DAY
     Route: 055
     Dates: start: 20061201
  2. REMICADE [Concomitant]
  3. MULTI-VITAMIN [Concomitant]
  4. ASCORBIC ACID [Concomitant]
  5. HORMONE TREATMENT [Concomitant]
     Indication: MENOPAUSE
  6. GLUCOSAMINE [Concomitant]
  7. DICLOFENAC [Concomitant]
  8. ALLEGRA [Concomitant]
  9. ALBUTEROL [Concomitant]

REACTIONS (4)
  - ARTHRALGIA [None]
  - HOT FLUSH [None]
  - RASH PRURITIC [None]
  - WHEEZING [None]
